FAERS Safety Report 25089108 (Version 1)
Quarter: 2025Q1

REPORT INFORMATION
  Report Type: Other
  Country: US (occurrence: US)
  Receive Date: 20250318
  Receipt Date: 20250318
  Transmission Date: 20250409
  Serious: Yes (Other)
  Sender: Alora Pharma
  Company Number: US-OSMOTICA PHARMACEUTICALS-2025ALO00101

PATIENT
  Sex: Male

DRUGS (8)
  1. METHYLPHENIDATE HYDROCHLORIDE [Suspect]
     Active Substance: METHYLPHENIDATE HYDROCHLORIDE
     Dosage: 36 MG AT LUNCH TIME [FILL DATE 30-NOV-2023]
     Dates: start: 20231130
  2. METHYLPHENIDATE HYDROCHLORIDE [Suspect]
     Active Substance: METHYLPHENIDATE HYDROCHLORIDE
     Dosage: 36 MG AT LUNCH TIME [FILL DATE: 04-FEB-2024]
     Dates: start: 20240204
  3. METHYLPHENIDATE HYDROCHLORIDE [Suspect]
     Active Substance: METHYLPHENIDATE HYDROCHLORIDE
     Dosage: 36 MG AT LUNCH TIME [FILL DATE 05-AUG-2024; 8 TABLETS DISPENSED]]
     Dates: start: 20240805
  4. METHYLPHENIDATE HYDROCHLORIDE [Suspect]
     Active Substance: METHYLPHENIDATE HYDROCHLORIDE
     Dosage: 36 MG, 1X/DAY [FILL DATE: 03-SEP-2024]
     Dates: start: 20240903
  5. METHYLPHENIDATE HYDROCHLORIDE [Suspect]
     Active Substance: METHYLPHENIDATE HYDROCHLORIDE
     Dosage: 36 MG AT LUNCH TIME [FILL DATE: 02-JAN-2025]
     Dates: start: 20250102, end: 2025
  6. METHYLPHENIDATE HYDROCHLORIDE [Suspect]
     Active Substance: METHYLPHENIDATE HYDROCHLORIDE
     Dosage: 54 MG IN THE MORNING [FILL DATE 12-DEC-2023]
     Dates: start: 20231212
  7. METHYLPHENIDATE HYDROCHLORIDE [Suspect]
     Active Substance: METHYLPHENIDATE HYDROCHLORIDE
     Dosage: 54 MG IN THE MORNING [FILL DATE 10-JAN-2024]
     Dates: start: 20240110
  8. METHYLPHENIDATE HYDROCHLORIDE [Suspect]
     Active Substance: METHYLPHENIDATE HYDROCHLORIDE
     Dosage: 54 MG IN THE MORNING
     Dates: start: 202409

REACTIONS (5)
  - Suicidal ideation [Unknown]
  - Emotional disorder [Unknown]
  - Aggression [Unknown]
  - Product substitution issue [Unknown]
  - Product substitution issue [Unknown]
